FAERS Safety Report 5945883-9 (Version None)
Quarter: 2008Q4

REPORT INFORMATION
  Report Type: 
  Country: None (occurrence: None)
  Receive Date: 20081110
  Receipt Date: 20081103
  Transmission Date: 20090506
  Serious: Yes (Hospitalization)
  Sender: FDA-Public Use
  Company Number: US-JNJFOC-20081101073

PATIENT
  Sex: Male
  Weight: 86.18 kg

DRUGS (3)
  1. LEVAQUIN [Suspect]
     Indication: BIOPSY PROSTATE
     Route: 048
  2. LEVAQUIN [Suspect]
     Indication: CHOLECYSTITIS
     Route: 042
  3. FLOMAX [Concomitant]
     Indication: BENIGN PROSTATIC HYPERPLASIA
     Route: 048

REACTIONS (3)
  - CHOLECYSTITIS [None]
  - CONFUSIONAL STATE [None]
  - ESCHERICHIA INFECTION [None]
